FAERS Safety Report 14262436 (Version 2)
Quarter: 2018Q1

REPORT INFORMATION
  Report Type: Spontaneous
  Country: JP (occurrence: JP)
  Receive Date: 20171208
  Receipt Date: 20180102
  Transmission Date: 20180508
  Serious: Yes (Other)
  Sender: FDA-Public Use
  Company Number: JP-ORION CORPORATION ORION PHARMA-ENT 2017-0176

PATIENT
  Age: 66 Year
  Sex: Male

DRUGS (6)
  1. COMTAN [Suspect]
     Active Substance: ENTACAPONE
     Indication: PARKINSON^S DISEASE
     Route: 048
  2. MADOPAR [Suspect]
     Active Substance: BENSERAZIDE HYDROCHLORIDE\LEVODOPA
     Dosage: 200MG, 100MG, 100MG
     Route: 048
  3. BI SIFROL [Concomitant]
     Active Substance: PRAMIPEXOLE
     Route: 065
  4. BI SIFROL [Concomitant]
     Active Substance: PRAMIPEXOLE
     Dosage: DOSE INCREASED
     Route: 065
  5. MADOPAR [Suspect]
     Active Substance: BENSERAZIDE HYDROCHLORIDE\LEVODOPA
     Dosage: DOSE REDUCED
     Route: 048
  6. TRERIEF [Concomitant]
     Active Substance: ZONISAMIDE
     Route: 065

REACTIONS (1)
  - Angle closure glaucoma [Unknown]
